FAERS Safety Report 14678674 (Version 1)
Quarter: 2018Q1

REPORT INFORMATION
  Report Type: Spontaneous
  Country: FR (occurrence: FR)
  Receive Date: 20180326
  Receipt Date: 20180326
  Transmission Date: 20180509
  Serious: Yes (Other)
  Sender: FDA-Public Use
  Company Number: FR-MERCK KGAA-2044495

PATIENT
  Age: 53 Year
  Sex: Female

DRUGS (1)
  1. NOVOTHYROX [Suspect]
     Active Substance: LEVOTHYROXINE SODIUM
     Indication: PRODUCT USED FOR UNKNOWN INDICATION

REACTIONS (27)
  - Blood count abnormal [None]
  - Anger [None]
  - Tension [None]
  - Mean cell volume increased [None]
  - Hyperhidrosis [None]
  - Hyperthyroidism [None]
  - Hypothyroidism [None]
  - Abdominal pain [None]
  - Flushing [None]
  - Nervousness [None]
  - Irritability [None]
  - Aggression [None]
  - Eosinophil count decreased [None]
  - Dizziness [None]
  - Pernicious anaemia [None]
  - Sleep disorder [None]
  - Mean cell haemoglobin increased [None]
  - Social avoidant behaviour [None]
  - Weight decreased [None]
  - Affect lability [None]
  - Pain in extremity [None]
  - Vitamin B12 decreased [None]
  - Alopecia [None]
  - Insomnia [None]
  - Tremor [None]
  - Vitamin D decreased [None]
  - Red blood cell count decreased [None]

NARRATIVE: CASE EVENT DATE: 201704
